FAERS Safety Report 9354870 (Version 3)
Quarter: 2013Q3

REPORT INFORMATION
  Report Type: Spontaneous
  Country: PL (occurrence: PL)
  Receive Date: 20130619
  Receipt Date: 20130905
  Transmission Date: 20140515
  Serious: Yes (Other)
  Sender: FDA-Public Use
  Company Number: PL-ROCHE-1237693

PATIENT
  Age: 60 Year
  Sex: Female

DRUGS (5)
  1. XELODA [Suspect]
     Indication: COLORECTAL CANCER
     Dosage: 2 CYCLES, 7 TABLETS DAILY, 2 X 2 WEEKS.
     Route: 065
  2. XELODA [Suspect]
     Indication: METASTASES TO LIVER
  3. FOLINIC ACID [Concomitant]
  4. FLUOROURACIL [Concomitant]
  5. OXALIPLATIN [Concomitant]

REACTIONS (6)
  - Anuria [Unknown]
  - Skin discolouration [Unknown]
  - Asthenia [Unknown]
  - Dehydration [Unknown]
  - Diarrhoea [Unknown]
  - Vomiting [Unknown]
